FAERS Safety Report 19745905 (Version 1)
Quarter: 2021Q3

REPORT INFORMATION
  Report Type: Spontaneous
  Country: US (occurrence: US)
  Receive Date: 20210824
  Receipt Date: 20210824
  Transmission Date: 20211014
  Serious: Yes (Disabling)
  Sender: FDA-Public Use
  Company Number: None

PATIENT
  Age: 52 Year
  Sex: Female
  Weight: 112.5 kg

DRUGS (1)
  1. LEVAQUIN [Suspect]
     Active Substance: LEVOFLOXACIN
     Indication: PNEUMONIA

REACTIONS (11)
  - Neck pain [None]
  - Visual impairment [None]
  - Pain [None]
  - Muscle spasms [None]
  - Arthralgia [None]
  - Depression [None]
  - Thyroid disorder [None]
  - Vitamin D decreased [None]
  - Contusion [None]
  - Gait inability [None]
  - Tendon pain [None]

NARRATIVE: CASE EVENT DATE: 20210820
